FAERS Safety Report 14305893 (Version 9)
Quarter: 2020Q2

REPORT INFORMATION
  Report Type: Report from Study
  Country: US (occurrence: US)
  Receive Date: 20171219
  Receipt Date: 20200430
  Transmission Date: 20200713
  Serious: Yes (Disabling, Other)
  Sender: FDA-Public Use
  Company Number: US-ACTELION-A-US2017-164123

PATIENT
  Sex: Male

DRUGS (6)
  1. LASIX [Concomitant]
     Active Substance: FUROSEMIDE
     Dosage: UNK
  2. SYNTHROID [Concomitant]
     Active Substance: LEVOTHYROXINE SODIUM
     Dosage: UNK
  3. OPSUMIT [Suspect]
     Active Substance: MACITENTAN
     Indication: PULMONARY HYPERTENSION
     Dosage: 10 MG, QD
     Route: 048
     Dates: start: 20160211
  4. XARELTO [Concomitant]
     Active Substance: RIVAROXABAN
  5. WARFARIN [Concomitant]
     Active Substance: WARFARIN
     Dosage: UNK
  6. SILDENAFIL. [Concomitant]
     Active Substance: SILDENAFIL
     Dosage: UNK

REACTIONS (14)
  - Tongue movement disturbance [Unknown]
  - Paralysis [Unknown]
  - Dysarthria [Unknown]
  - Dystonia [Unknown]
  - Dysphagia [Unknown]
  - Osteolysis [Unknown]
  - Aortic stenosis [Unknown]
  - Aphasia [Unknown]
  - Muscle disorder [Not Recovered/Not Resolved]
  - Condition aggravated [Unknown]
  - Amyotrophic lateral sclerosis [Unknown]
  - Pulmonary hypertension [Unknown]
  - Upper motor neurone lesion [Unknown]
  - Embolism [Unknown]

NARRATIVE: CASE EVENT DATE: 2018
